FAERS Safety Report 15515190 (Version 2)
Quarter: 2018Q4

REPORT INFORMATION
  Report Type: Spontaneous
  Country: US (occurrence: US)
  Receive Date: 20181017
  Receipt Date: 20181025
  Transmission Date: 20190205
  Serious: Yes (Hospitalization)
  Sender: FDA-Public Use
  Company Number: US-AEGERION PHARMACEUTICAL, INC-AEGR004014

PATIENT
  Sex: Male
  Weight: 109.75 kg

DRUGS (1)
  1. JUXTAPID [Suspect]
     Active Substance: LOMITAPIDE MESYLATE
     Indication: TYPE IIA HYPERLIPIDAEMIA
     Dosage: 5 MG, QD, DAILY AT BEDTIME
     Route: 048
     Dates: start: 2018, end: 2018

REACTIONS (4)
  - Therapy cessation [Unknown]
  - Chest pain [Unknown]
  - Coronary artery occlusion [Unknown]
  - Weight increased [Unknown]
